FAERS Safety Report 7655311-3 (Version None)
Quarter: 2011Q3

REPORT INFORMATION
  Report Type: 
  Country: None (occurrence: None)
  Receive Date: 20110801
  Receipt Date: 20110714
  Transmission Date: 20111222
  Serious: Yes (Other)
  Sender: FDA-Public Use
  Company Number: 2011MA008887

PATIENT
  Age: 67 Year
  Sex: Female

DRUGS (3)
  1. METFORMIN HYDROCHLORIDE [Suspect]
     Indication: DIABETES MELLITUS
     Dosage: 850 MG; TID; UNK
  2. RAMIPRIL [Concomitant]
  3. TERAZOSIN HCL [Concomitant]

REACTIONS (13)
  - DRUG PRESCRIBING ERROR [None]
  - DIARRHOEA [None]
  - BLOOD PHOSPHORUS INCREASED [None]
  - INCORRECT DOSE ADMINISTERED [None]
  - RECTAL TENESMUS [None]
  - BLOOD PARATHYROID HORMONE INCREASED [None]
  - INFECTION [None]
  - GAIT DISTURBANCE [None]
  - HYPOPHOSPHATAEMIA [None]
  - ASTHENIA [None]
  - WHITE BLOOD CELL COUNT DECREASED [None]
  - DECREASED APPETITE [None]
  - PLATELET COUNT DECREASED [None]
